FAERS Safety Report 8340804-6 (Version None)
Quarter: 2012Q1

REPORT INFORMATION
  Report Type: 
  Country: None (occurrence: None)
  Receive Date: 20120329
  Receipt Date: 20081106
  Transmission Date: 20120608
  Serious: Yes (Other)
  Sender: FDA-Public Use
  Company Number: PHEH2008US11625

PATIENT
  Sex: Female

DRUGS (1)
  1. EXELON [Suspect]
     Indication: VASCULAR DEMENTIA
     Dosage: TRANSDERMAL ; TRANSDERMAL
     Route: 062

REACTIONS (1)
  - PERSONALITY CHANGE [None]
